FAERS Safety Report 9416407 (Version 2)
Quarter: 2013Q3

REPORT INFORMATION
  Report Type: Spontaneous
  Country: US (occurrence: US)
  Receive Date: 20130724
  Receipt Date: 20130807
  Transmission Date: 20140515
  Serious: No
  Sender: FDA-Public Use
  Company Number: US-PFIZER INC-2013135981

PATIENT
  Age: 55 Year
  Sex: Male
  Weight: 95.24 kg

DRUGS (2)
  1. LYRICA [Suspect]
     Indication: NEURALGIA
     Dosage: 75 MG, 2X/DAY
     Route: 048
     Dates: start: 201303
  2. OXYCODONE HYDROCHLORIDE [Interacting]
     Indication: NEURALGIA
     Dosage: 15 MG, AS NEEDED
     Dates: start: 201201

REACTIONS (5)
  - Dizziness [Not Recovered/Not Resolved]
  - Drug interaction [Unknown]
  - Neuralgia [Not Recovered/Not Resolved]
  - Dizziness [Not Recovered/Not Resolved]
  - Speech disorder [Not Recovered/Not Resolved]
